FAERS Safety Report 6936928-8 (Version None)
Quarter: 2010Q3

REPORT INFORMATION
  Report Type: 
  Country: None (occurrence: None)
  Receive Date: 20100823
  Receipt Date: 20100813
  Transmission Date: 20110219
  Serious: Yes (Other)
  Sender: FDA-Public Use
  Company Number: AU-PFIZER INC-2010102794

PATIENT
  Sex: Male

DRUGS (2)
  1. LIPITOR [Suspect]
     Dosage: 80 MG, DAILY
     Dates: start: 20100801
  2. SIMVASTATIN [Suspect]
     Dosage: 20 MG, UNK
     Dates: end: 20100801

REACTIONS (1)
  - PHOTOSENSITIVITY REACTION [None]
